FAERS Safety Report 9799913 (Version 1)
Quarter: 2014Q1

REPORT INFORMATION
  Report Type: Spontaneous
  Country: GB (occurrence: GB)
  Receive Date: 20140106
  Receipt Date: 20140106
  Transmission Date: 20141002
  Serious: Yes (Hospitalization)
  Sender: FDA-Public Use
  Company Number: GB-ASTRAZENECA-2013SE94618

PATIENT
  Age: 92 Year
  Sex: Male

DRUGS (9)
  1. OMEPRAZOLE [Suspect]
     Route: 048
  2. ASPIRIN [Concomitant]
  3. BISOPROLOL [Concomitant]
  4. BUMETANIDE [Concomitant]
  5. HUMULIN [Concomitant]
  6. LINAGLIPTIN [Concomitant]
  7. PARACETAMOL [Concomitant]
  8. TEMAZEPAM [Concomitant]
  9. WARFARIN [Concomitant]

REACTIONS (2)
  - Hypocalcaemia [Recovering/Resolving]
  - Hypomagnesaemia [Recovering/Resolving]
